FAERS Safety Report 6266051-X (Version None)
Quarter: 2009Q3

REPORT INFORMATION
  Report Type: 
  Country: None (occurrence: None)
  Receive Date: 20090709
  Receipt Date: 20090709
  Transmission Date: 20100115
  Serious: Yes (Hospitalization, Other)
  Sender: FDA-Public Use
  Company Number: None

PATIENT
  Age: 48 Year
  Sex: Female
  Weight: 68.0396 kg

DRUGS (2)
  1. NAPROXEN [Suspect]
     Indication: PERIARTHRITIS
     Dosage: 500MG 2X-S DAILY PO
     Route: 048
     Dates: start: 20090224, end: 20090630
  2. NAPROXEN [Suspect]
     Indication: TENDONITIS
     Dosage: 500MG 2X-S DAILY PO
     Route: 048
     Dates: start: 20090224, end: 20090630

REACTIONS (5)
  - ABDOMINAL PAIN [None]
  - CONSTIPATION [None]
  - DIARRHOEA [None]
  - NAUSEA [None]
  - VOMITING [None]
